FAERS Safety Report 6589724-8 (Version None)
Quarter: 2010Q1

REPORT INFORMATION
  Report Type: 
  Country: None (occurrence: None)
  Receive Date: 20100212
  Receipt Date: 20100126
  Transmission Date: 20100710
  Serious: Yes (Hospitalization)
  Sender: FDA-Public Use
  Company Number: 2010000170

PATIENT
  Age: 72 Year
  Sex: Male

DRUGS (17)
  1. ERLOTINIB HYDROCHLORIDE [Suspect]
     Indication: RENAL CELL CARCINOMA
     Dosage: (150 MG), ORAL
     Route: 048
     Dates: start: 20040910, end: 20091208
  2. BEVACIZUMAB (INJECTION FOR INFUSION) [Suspect]
     Indication: RENAL CELL CARCINOMA
     Dosage: (10 MG/KG, Q2W), INTRAVENOUS
     Route: 042
     Dates: start: 20040910, end: 20091208
  3. GLEEVEC [Suspect]
     Indication: RENAL CELL CARCINOMA
     Dosage: ORAL
     Route: 048
  4. HUMULIN 70/30 [Concomitant]
  5. PROPAFENONE HYDROCHLORIDE [Concomitant]
  6. LOVASTATIN [Concomitant]
  7. PREVACID [Concomitant]
  8. VALIUM [Concomitant]
  9. SOMA [Concomitant]
  10. ASPIRIN [Concomitant]
  11. METAMUCIL-2 [Concomitant]
  12. HUMULIN R [Concomitant]
  13. SIMVASTATIN [Concomitant]
  14. EXONAPARIN SODIUM(HEPARIN-FRACTION, SODIUM SALT) [Concomitant]
  15. LEVAQUIN [Concomitant]
  16. ALLOPURINOL [Concomitant]
  17. TEGASEROD (TEGASEROD) [Concomitant]

REACTIONS (4)
  - CEREBROVASCULAR ACCIDENT [None]
  - CONTUSION [None]
  - GAIT DISTURBANCE [None]
  - ISCHAEMIC STROKE [None]
